FAERS Safety Report 25877725 (Version 1)
Quarter: 2025Q4

REPORT INFORMATION
  Report Type: Report from Study
  Country: IR (occurrence: IR)
  Receive Date: 20251003
  Receipt Date: 20251003
  Transmission Date: 20260117
  Serious: Yes (Death)
  Sender: ROCHE
  Company Number: IR-ROCHE-10000399615

PATIENT

DRUGS (7)
  1. RITUXIMAB [Suspect]
     Active Substance: RITUXIMAB
     Indication: Granulomatosis with polyangiitis
     Dosage: DOSE ON DAYS 1 AND 15 TO ACHIEVE?REMISSION, WITH SUBSEQUENT 500 MG IV INFUSIONS EVERY 6 MONTHS FOR M
     Route: 042
  2. RITUXIMAB [Suspect]
     Active Substance: RITUXIMAB
     Dosage: SUBSEQUENT 500 MG IV INFUSIONS EVERY 6 MONTHS FOR MAINTENANCE.
     Route: 042
  3. MYCOPHENOLATE MOFETIL [Suspect]
     Active Substance: MYCOPHENOLATE MOFETIL
     Indication: Granulomatosis with polyangiitis
     Route: 042
  4. CYCLOPHOSPHAMIDE [Suspect]
     Active Substance: CYCLOPHOSPHAMIDE
     Indication: Granulomatosis with polyangiitis
     Dosage: 15 MG/KG PULSES EVERY?2-3 WEEKS DURING INDUCTION
     Route: 065
  5. METHOTREXATE [Suspect]
     Active Substance: METHOTREXATE
     Indication: Granulomatosis with polyangiitis
     Dosage: 15 MG/WEEK
     Route: 065
  6. AZATHIOPRINE [Suspect]
     Active Substance: AZATHIOPRINE
     Indication: Granulomatosis with polyangiitis
     Route: 065
  7. METHYLPREDNISOLONE [Suspect]
     Active Substance: METHYLPREDNISOLONE
     Indication: Granulomatosis with polyangiitis
     Route: 065

REACTIONS (2)
  - Infection [Fatal]
  - Neoplasm malignant [Fatal]
